FAERS Safety Report 5305628-2 (Version None)
Quarter: 2007Q2

REPORT INFORMATION
  Report Type: 
  Country: None (occurrence: None)
  Receive Date: 20070416
  Receipt Date: 20070329
  Transmission Date: 20071010
  Serious: Yes (Other)
  Sender: FDA-Public Use
  Company Number: ACO_0332_2007

PATIENT

DRUGS (1)
  1. TERNELIN [Suspect]
     Dosage: 1 MG BID PO
     Route: 048

REACTIONS (1)
  - RESPIRATORY DEPRESSION [None]
